FAERS Safety Report 10087034 (Version 3)
Quarter: 2014Q2

REPORT INFORMATION
  Report Type: Spontaneous
  Country: BR (occurrence: BR)
  Receive Date: 20140418
  Receipt Date: 20140620
  Transmission Date: 20141212
  Serious: Yes (Hospitalization, Disabling)
  Sender: FDA-Public Use
  Company Number: BR-ASTRAZENECA-2014SE25876

PATIENT
  Age: 72 Year
  Sex: Male
  Weight: 69 kg

DRUGS (4)
  1. CRESTOR [Suspect]
     Indication: BLOOD CHOLESTEROL INCREASED
     Route: 048
     Dates: start: 2012
  2. BRILINTA [Suspect]
     Route: 048
     Dates: start: 201404
  3. CONCOR [Concomitant]
     Indication: HYPERTENSION
     Route: 048
     Dates: start: 2013
  4. APRAZ [Concomitant]
     Indication: SLEEP DISORDER
     Route: 048

REACTIONS (4)
  - Coronary artery occlusion [Recovering/Resolving]
  - Intestinal ulcer [Recovered/Resolved]
  - Hypertension [Recovering/Resolving]
  - Abdominal pain upper [Recovering/Resolving]
